FAERS Safety Report 20922981 (Version 1)
Quarter: 2022Q2

REPORT INFORMATION
  Report Type: Spontaneous
  Country: US (occurrence: US)
  Receive Date: 20220607
  Receipt Date: 20220607
  Transmission Date: 20220721
  Serious: No
  Sender: FDA-Public Use
  Company Number: US-PHARMAESSENTIA CORPORATION-US-2022-PEC-000537

PATIENT

DRUGS (2)
  1. BESREMI [Suspect]
     Active Substance: ROPEGINTERFERON ALFA-2B-NJFT
     Indication: Polycythaemia vera
     Dosage: 50 MCG EVERY 14 DAYS
     Route: 058
     Dates: start: 20220309
  2. FAMOTIDINE [Concomitant]
     Active Substance: FAMOTIDINE
     Indication: Gastrooesophageal reflux disease
     Dosage: 40 MILLIGRAM
     Route: 065
     Dates: start: 2021

REACTIONS (7)
  - Anxiety [Unknown]
  - Headache [Unknown]
  - Injection site reaction [Unknown]
  - Fatigue [Recovered/Resolved]
  - Insomnia [Unknown]
  - Gastrooesophageal reflux disease [Recovering/Resolving]
  - Haematocrit increased [Unknown]

NARRATIVE: CASE EVENT DATE: 20220311
